FAERS Safety Report 6783970-6 (Version None)
Quarter: 2010Q2

REPORT INFORMATION
  Report Type: 
  Country: None (occurrence: None)
  Receive Date: 20100622
  Receipt Date: 20091118
  Transmission Date: 20101027
  Serious: No
  Sender: FDA-Public Use
  Company Number: US-BRISTOL-MYERS SQUIBB COMPANY-14841258

PATIENT
  Age: 81 Year
  Sex: Female

DRUGS (2)
  1. SINEMET CR [Suspect]
     Indication: PARKINSON'S DISEASE
     Dosage: 1 DF = 1/2 - 1 SINEMET CR TABS 50MG/200MG:5-6 TIMES/D; SINEMET CR 50/200MG: 1 FULL HS
     Route: 048
     Dates: start: 19960101
  2. SINEMET [Suspect]
     Indication: PARKINSON'S DISEASE
     Dosage: 1/2 - 1 TAB 5-6 TIMES DAILY
     Route: 048
     Dates: start: 19960101

REACTIONS (2)
  - DISEASE PROGRESSION [None]
  - DRUG INEFFECTIVE [None]
